FAERS Safety Report 6852621-4 (Version None)
Quarter: 2010Q3

REPORT INFORMATION
  Report Type: 
  Country: None (occurrence: None)
  Receive Date: 20100717
  Receipt Date: 20080103
  Transmission Date: 20110219
  Serious: No
  Sender: FDA-Public Use
  Company Number: US-PFIZER INC-2007096784

PATIENT
  Sex: Female
  Weight: 93.181 kg

DRUGS (6)
  1. CHANTIX [Suspect]
     Indication: SMOKING CESSATION THERAPY
     Dates: start: 20071101
  2. VICODIN [Interacting]
     Indication: PAIN
     Dates: start: 20071102
  3. FLEXERIL [Interacting]
     Indication: HYPOTONIA
     Dates: start: 20071102
  4. REGLAN [Concomitant]
  5. NEXIUM [Concomitant]
  6. FAMVIR [Concomitant]

REACTIONS (2)
  - ABNORMAL DREAMS [None]
  - DRUG INTERACTION [None]
